FAERS Safety Report 9402312 (Version 2)
Quarter: 2013Q4

REPORT INFORMATION
  Report Type: Spontaneous
  Country: US (occurrence: US)
  Receive Date: 20130716
  Receipt Date: 20131001
  Transmission Date: 20140711
  Serious: Yes (Death)
  Sender: FDA-Public Use
  Company Number: US-PFIZER INC-2013205898

PATIENT
  Sex: Female

DRUGS (2)
  1. LIPITOR [Suspect]
     Dosage: UNK
  2. ELIQUIS [Interacting]
     Dosage: UNK

REACTIONS (3)
  - Pneumonia [Fatal]
  - Drug interaction [Unknown]
  - Liver function test abnormal [Unknown]
